FAERS Safety Report 8120038-0 (Version None)
Quarter: 2012Q1

REPORT INFORMATION
  Report Type: 
  Country: None (occurrence: None)
  Receive Date: 20120207
  Receipt Date: 20120206
  Transmission Date: 20120608
  Serious: Yes (Other)
  Sender: FDA-Public Use
  Company Number: US-BAYER-2012-012187

PATIENT
  Age: 48 Year
  Sex: Male

DRUGS (4)
  1. INTERFERON BETA-1B [Suspect]
     Dosage: 2 MIU, QOD, WITH BETAJECT
     Route: 058
     Dates: start: 20120129
  2. EFFEXOR XR [Concomitant]
     Indication: DEPRESSION
     Dosage: 150 MG, QD
  3. INTERFERON BETA-1B [Suspect]
     Indication: MULTIPLE SCLEROSIS
     Dosage: UNK
     Dates: start: 20091009, end: 20111031
  4. IBUPROFEN [Concomitant]
     Indication: PROPHYLAXIS

REACTIONS (2)
  - DYSPNOEA [None]
  - ARRHYTHMIA [None]
